FAERS Safety Report 7325718-2 (Version None)
Quarter: 2011Q1

REPORT INFORMATION
  Report Type: 
  Country: None (occurrence: None)
  Receive Date: 20110216
  Receipt Date: 20110131
  Transmission Date: 20110831
  Serious: Yes (Other)
  Sender: FDA-Public Use
  Company Number: 2011SP004557

PATIENT
  Age: 44 Year
  Sex: Male

DRUGS (1)
  1. DIPROSONE [Suspect]
     Indication: PSORIASIS

REACTIONS (1)
  - OSTEOCHONDROSIS [None]
